FAERS Safety Report 9256931 (Version 4)
Quarter: 2014Q1

REPORT INFORMATION
  Report Type: Spontaneous
  Country: US (occurrence: US)
  Receive Date: 20130426
  Receipt Date: 20140214
  Transmission Date: 20141002
  Serious: Yes (Hospitalization)
  Sender: FDA-Public Use
  Company Number: US-ASTRAZENECA-2013SE27303

PATIENT
  Age: 59 Year
  Sex: Female
  Weight: 79.4 kg

DRUGS (25)
  1. NEXIUM [Suspect]
     Indication: GASTROOESOPHAGEAL REFLUX DISEASE
     Route: 048
     Dates: start: 20070430
  2. NEXIUM [Suspect]
     Indication: DYSPEPSIA
     Route: 048
     Dates: start: 20070430
  3. NEXIUM [Suspect]
     Indication: GASTROINTESTINAL DISORDER
     Route: 048
     Dates: start: 20070430
  4. NEXIUM [Suspect]
     Indication: GASTROOESOPHAGEAL REFLUX DISEASE
     Route: 048
     Dates: end: 200810
  5. NEXIUM [Suspect]
     Indication: DYSPEPSIA
     Route: 048
     Dates: end: 200810
  6. NEXIUM [Suspect]
     Indication: GASTROINTESTINAL DISORDER
     Route: 048
     Dates: end: 200810
  7. PRILOSEC [Suspect]
     Indication: GASTROOESOPHAGEAL REFLUX DISEASE
     Route: 048
     Dates: start: 20080924
  8. PRILOSEC [Suspect]
     Indication: GASTROINTESTINAL DISORDER
     Route: 048
     Dates: start: 20080924
  9. ZANTAC [Concomitant]
  10. KLOR-CON [Concomitant]
     Indication: BLOOD POTASSIUM ABNORMAL
  11. PRAVACHOL [Concomitant]
     Indication: BLOOD CHOLESTEROL ABNORMAL
  12. NEURONTIN [Concomitant]
     Indication: PAIN
  13. NEURONTIN [Concomitant]
     Indication: CONVULSION
  14. DIOVAN [Concomitant]
     Indication: BLOOD PRESSURE ABNORMAL
  15. AMLODIPIN [Concomitant]
     Indication: BLOOD PRESSURE ABNORMAL
  16. HYDROCHLOROT [Concomitant]
     Indication: BLOOD PRESSURE ABNORMAL
  17. GABAPENTIN [Concomitant]
  18. FEXOFENADINE [Concomitant]
  19. LUNESTA [Concomitant]
  20. IBUPROFEN [Concomitant]
     Route: 048
     Dates: start: 20130716
  21. ATIVAN [Concomitant]
     Route: 048
     Dates: start: 20130716
  22. REGLAN [Concomitant]
     Route: 048
     Dates: start: 20130716
  23. ASPIRIN [Concomitant]
     Route: 048
     Dates: start: 20130214
  24. PREDNISONE [Concomitant]
     Route: 048
  25. TAGAMET [Concomitant]

REACTIONS (15)
  - Chest pain [Unknown]
  - Spinal osteoarthritis [Unknown]
  - Bone density decreased [Unknown]
  - Bone disorder [Unknown]
  - Upper limb fracture [Unknown]
  - Fall [Unknown]
  - Muscle spasms [Unknown]
  - Balance disorder [Unknown]
  - Glaucoma [Unknown]
  - Vitamin D deficiency [Unknown]
  - Osteopenia [Unknown]
  - Rotator cuff syndrome [Unknown]
  - Periarthritis [Unknown]
  - Muscular weakness [Unknown]
  - Diarrhoea [Unknown]
